FAERS Safety Report 8774388 (Version 2)
Quarter: 2013Q4

REPORT INFORMATION
  Report Type: Spontaneous
  Country: US (occurrence: US)
  Receive Date: 20120907
  Receipt Date: 20131105
  Transmission Date: 20140711
  Serious: Yes (Death, Other)
  Sender: FDA-Public Use
  Company Number: US-009507513-0202USA00726

PATIENT
  Age: 70 Year
  Sex: Female
  Weight: 101.13 kg

DRUGS (6)
  1. PRINIVIL [Suspect]
     Indication: HYPERTENSION
     Route: 048
  2. BENADRYL [Concomitant]
  3. SYNTHROID [Concomitant]
  4. PREMARIN [Concomitant]
  5. PROZAC [Concomitant]
  6. FUROSEMIDE [Concomitant]

REACTIONS (2)
  - Angioedema [Fatal]
  - Asphyxia [Fatal]
